FAERS Safety Report 5812467-2 (Version None)
Quarter: 2008Q3

REPORT INFORMATION
  Report Type: 
  Country: None (occurrence: None)
  Receive Date: 20080716
  Receipt Date: 20080716
  Transmission Date: 20090109
  Serious: Yes (Disabling)
  Sender: FDA-Public Use
  Company Number: None

PATIENT
  Age: 54 Year
  Sex: Male
  Weight: 4 kg

DRUGS (1)
  1. ESKALITH [Suspect]
     Indication: BIPOLAR DISORDER
     Dosage: 300 MG 2X DAILY
     Dates: start: 19860501, end: 20080701

REACTIONS (3)
  - DENTAL CARIES [None]
  - MICTURITION URGENCY [None]
  - URINARY INCONTINENCE [None]
